FAERS Safety Report 7556804-X (Version None)
Quarter: 2011Q2

REPORT INFORMATION
  Report Type: 
  Country: None (occurrence: None)
  Receive Date: 20110620
  Receipt Date: 20110613
  Transmission Date: 20111010
  Serious: Yes (Hospitalization)
  Sender: FDA-Public Use
  Company Number: BR-US-EMD SERONO, INC.-7065157

PATIENT
  Sex: Female

DRUGS (3)
  1. TRILEPTAL [Concomitant]
  2. PHENOBARBITAL TAB [Concomitant]
  3. REBIF [Suspect]
     Indication: RELAPSING-REMITTING MULTIPLE SCLEROSIS
     Route: 058
     Dates: start: 20100520

REACTIONS (2)
  - RENAL COLIC [None]
  - CALCULUS URINARY [None]
